FAERS Safety Report 17999959 (Version 1)
Quarter: 2020Q3

REPORT INFORMATION
  Report Type: Report from Study
  Country: CN (occurrence: CN)
  Receive Date: 20200709
  Receipt Date: 20200709
  Transmission Date: 20201104
  Serious: Yes (Other)
  Sender: FDA-Public Use
  Company Number: CN-ROCHE-2635418

PATIENT
  Sex: Female

DRUGS (7)
  1. TRASTUZUMAB. [Suspect]
     Active Substance: TRASTUZUMAB
     Indication: BREAST CANCER
     Route: 065
  2. VINORELBINE [Suspect]
     Active Substance: VINORELBINE TARTRATE
     Indication: BREAST CANCER
     Route: 065
  3. N?(4?(3?CHLORO?4?FLUOROPHENYLAMINO)?7?((7?METHYL?7?AZASPIRO(3.5)NONAN?2?YL)METHOXY)QUINAZOLIN?6?YL)ACRYLAMIDE. [Suspect]
     Active Substance: N-(4-(3-CHLORO-4-FLUOROPHENYLAMINO)-7-((7-METHYL-7-AZASPIRO(3.5)NONAN-2-YL)METHOXY)QUINAZOLIN-6-YL)ACRYLAMIDE
     Indication: BREAST CANCER
     Route: 065
  4. PACLITAXEL. [Suspect]
     Active Substance: PACLITAXEL
     Indication: BREAST CANCER
     Route: 065
  5. GEMCITABINE. [Suspect]
     Active Substance: GEMCITABINE
     Indication: BREAST CANCER
     Route: 065
  6. CYCLOPHOSPHAMIDE. [Suspect]
     Active Substance: CYCLOPHOSPHAMIDE
     Indication: BREAST CANCER
     Dosage: 50 MG OR 100 MG, ONCE A DAY, 21 DAYS
     Route: 065
  7. CAPECITABINE. [Suspect]
     Active Substance: CAPECITABINE
     Indication: BREAST CANCER
     Route: 065

REACTIONS (5)
  - Neutropenia [Unknown]
  - Mouth ulceration [Unknown]
  - Gastrointestinal disorder [Unknown]
  - Neurotoxicity [Unknown]
  - Asthenia [Unknown]
